FAERS Safety Report 7380733-8 (Version None)
Quarter: 2011Q1

REPORT INFORMATION
  Report Type: 
  Country: None (occurrence: None)
  Receive Date: 20110329
  Receipt Date: 20110318
  Transmission Date: 20110831
  Serious: Yes (Hospitalization)
  Sender: FDA-Public Use
  Company Number: A0731275A

PATIENT
  Age: 52 Year
  Sex: Male
  Weight: 122.7 kg

DRUGS (12)
  1. AVANDIA [Suspect]
     Dosage: 4MG TWICE PER DAY
     Route: 048
  2. AMITRIPTYLINE [Concomitant]
  3. NORVASC [Concomitant]
  4. AVALIDE [Concomitant]
  5. LEVEMIR [Concomitant]
     Dates: start: 20030101
  6. GLUCOTROL [Concomitant]
     Dosage: 10MG PER DAY
     Dates: start: 20020101
  7. AVONEX [Concomitant]
  8. TRICOR [Concomitant]
  9. NOVOLOG [Concomitant]
     Dates: start: 20010101
  10. TOPAMAX [Concomitant]
  11. ADVICOR [Concomitant]
  12. LEXAPRO [Concomitant]

REACTIONS (3)
  - CHEST PAIN [None]
  - MYOCARDIAL INFARCTION [None]
  - TRANSIENT ISCHAEMIC ATTACK [None]
